FAERS Safety Report 4528386-8 (Version None)
Quarter: 2004Q4

REPORT INFORMATION
  Report Type: 
  Country: None (occurrence: None)
  Receive Date: 20041216
  Receipt Date: 20041202
  Transmission Date: 20050328
  Serious: Yes (Disabling)
  Sender: FDA-Public Use
  Company Number: FR-JNJFOC-20040807409

PATIENT
  Age: 38 Year
  Sex: Male

DRUGS (8)
  1. REMICADE [Suspect]
     Indication: POLYARTHRITIS
     Route: 042
  2. REMICADE [Suspect]
     Route: 042
  3. METHOTREXATE [Suspect]
     Indication: POLYARTHRITIS
     Route: 065
  4. METHOTREXATE [Suspect]
     Route: 065
  5. ENBREL [Suspect]
     Indication: POLYARTHRITIS
     Route: 042
  6. ENBREL [Suspect]
     Route: 042
  7. ARAVA [Suspect]
     Indication: POLYARTHRITIS
     Route: 065
  8. ARAVA [Suspect]
     Route: 065

REACTIONS (2)
  - BLOOD LACTATE DEHYDROGENASE INCREASED [None]
  - NON-HODGKIN'S LYMPHOMA [None]
